FAERS Safety Report 9785379 (Version 2)
Quarter: 2014Q1

REPORT INFORMATION
  Report Type: Spontaneous
  Country: FR (occurrence: FR)
  Receive Date: 20131227
  Receipt Date: 20140120
  Transmission Date: 20141002
  Serious: Yes (Other)
  Sender: FDA-Public Use
  Company Number: FR-009507513-1312FRA008638

PATIENT
  Sex: Female

DRUGS (6)
  1. INEGY [Suspect]
     Dosage: 1 DF, QD
     Route: 048
     Dates: start: 201201, end: 20131111
  2. METFORMIN [Concomitant]
     Dosage: 1 G, BID
     Route: 048
  3. MONO-TILDIEM [Concomitant]
     Dosage: 200 MG, QD
     Route: 048
  4. CLOPIDOGREL [Concomitant]
     Dosage: 75 MG, QD
     Route: 048
  5. HYTACAND [Concomitant]
     Dosage: 1 DF, QD
     Route: 048
  6. CYMBALTA [Concomitant]
     Dosage: 60 MG, BID
     Route: 048

REACTIONS (3)
  - Tendon rupture [Recovering/Resolving]
  - Bursitis [Recovering/Resolving]
  - Tendon calcification [Recovering/Resolving]
